FAERS Safety Report 24134735 (Version 1)
Quarter: 2024Q3

REPORT INFORMATION
  Report Type: Spontaneous
  Country: US (occurrence: US)
  Receive Date: 20240725
  Receipt Date: 20240725
  Transmission Date: 20241016
  Serious: Yes (Hospitalization, Other)
  Sender: HIKMA
  Company Number: US-HIKMA PHARMACEUTICALS-US-H14001-24-06732

PATIENT

DRUGS (8)
  1. BRENTUXIMAB VEDOTIN [Suspect]
     Active Substance: BRENTUXIMAB VEDOTIN
     Indication: Angioimmunoblastic T-cell lymphoma
     Dosage: 167.4 MILLIGRAM, ON DAY 1, ONCE
     Route: 042
     Dates: start: 20231030
  2. CYCLOPHOSPHAMIDE [Suspect]
     Active Substance: CYCLOPHOSPHAMIDE
     Indication: Angioimmunoblastic T-cell lymphoma
     Dosage: 1680 MILLIGRAM, ON DAY 1
     Route: 042
     Dates: start: 20231030, end: 20231030
  3. CYCLOPHOSPHAMIDE [Suspect]
     Active Substance: CYCLOPHOSPHAMIDE
     Dosage: 1680 MILLIGRAM
     Route: 042
     Dates: start: 20231030
  4. DOXORUBICIN [Suspect]
     Active Substance: DOXORUBICIN
     Indication: Angioimmunoblastic T-cell lymphoma
     Dosage: 112 MILLIGRAM, ON DAY 1
     Route: 042
     Dates: start: 20231030
  5. ETOPOSIDE [Suspect]
     Active Substance: ETOPOSIDE
     Indication: Angioimmunoblastic T-cell lymphoma
     Dosage: 223 MILLIGRAM, ON DAY 1
     Route: 042
     Dates: start: 20231030
  6. ETOPOSIDE [Suspect]
     Active Substance: ETOPOSIDE
     Indication: Angioimmunoblastic T-cell lymphoma
     Dosage: 5 CAPS IN THE AM, 4 CAPS IN THE 10/31/2023 TO 11/01/2023 10/31/2024 PM, DAY 2 AND 3, ORAL
     Route: 048
     Dates: start: 20231031, end: 20231101
  7. PEGFILGRASTIM [Suspect]
     Active Substance: PEGFILGRASTIM
     Indication: Angioimmunoblastic T-cell lymphoma
     Dosage: 300 MICROGRAM, DAY 7-11 EACH CYCLE
     Route: 058
  8. PREDNISONE [Suspect]
     Active Substance: PREDNISONE
     Indication: Angioimmunoblastic T-cell lymphoma
     Dosage: 100 MILLIGRAM, QD, 1-5 DAYS
     Route: 048
     Dates: start: 20231030, end: 20231103

REACTIONS (6)
  - Febrile neutropenia [Recovered/Resolved]
  - Urinary tract infection [Recovered/Resolved]
  - Fatigue [Unknown]
  - Urine abnormality [Unknown]
  - Asthenia [Unknown]
  - Pyrexia [Unknown]

NARRATIVE: CASE EVENT DATE: 20231108
